FAERS Safety Report 8906998 (Version 1)
Quarter: 2012Q4

REPORT INFORMATION
  Report Type: 
  Country: US (occurrence: US)
  Receive Date: 20121114
  Receipt Date: 20121114
  Transmission Date: 20130627
  Serious: Yes (Other)
  Sender: FDA-Public Use
  Company Number: US-TEVA-369509USA

PATIENT
  Sex: Female

DRUGS (5)
  1. NUVIGIL [Suspect]
     Indication: DEPRESSION
     Dosage: QAM
     Route: 048
     Dates: start: 201209
  2. NUVIGIL [Suspect]
     Indication: FATIGUE
  3. ABILIFY [Concomitant]
     Indication: DEPRESSION
  4. LAMOTRIGINE [Concomitant]
  5. GENERIC CELEXA [Concomitant]

REACTIONS (6)
  - Suicidal ideation [Not Recovered/Not Resolved]
  - Withdrawal syndrome [Not Recovered/Not Resolved]
  - Depression [Not Recovered/Not Resolved]
  - Fatigue [Not Recovered/Not Resolved]
  - Insomnia [Unknown]
  - Depressed mood [Unknown]
